FAERS Safety Report 5900590-3 (Version None)
Quarter: 2008Q3

REPORT INFORMATION
  Report Type: 
  Country: None (occurrence: None)
  Receive Date: 20080926
  Receipt Date: 20080916
  Transmission Date: 20090109
  Serious: Yes (Other)
  Sender: FDA-Public Use
  Company Number: FI-JNJFOC-20080903752

PATIENT
  Sex: Female

DRUGS (10)
  1. REMICADE [Suspect]
     Dosage: FOURTH INFLIXIMAB INFUSION
     Route: 042
  2. REMICADE [Suspect]
     Indication: JUVENILE ARTHRITIS
     Route: 042
  3. CORTISONE [Concomitant]
  4. CORTISONE [Concomitant]
     Indication: COLITIS
  5. PREDNISOLONE [Concomitant]
     Indication: INFLAMMATORY BOWEL DISEASE
     Route: 048
  6. SALAZOPYRIN [Concomitant]
     Indication: INFLAMMATORY BOWEL DISEASE
     Route: 048
  7. AZAMUN [Concomitant]
     Indication: IRRITABLE BOWEL SYNDROME
     Route: 048
  8. SOMAC [Concomitant]
     Indication: GASTROINTESTINAL DISORDER THERAPY
     Route: 048
  9. CALCIUM GLUCONATE [Concomitant]
     Route: 048
  10. ACETAMINOPHEN [Concomitant]
     Indication: PREMEDICATION

REACTIONS (9)
  - ANAPHYLACTIC REACTION [None]
  - ARTHROPATHY [None]
  - COUGH [None]
  - HEADACHE [None]
  - INFLUENZA [None]
  - INFUSION RELATED REACTION [None]
  - PALLOR [None]
  - PHARYNGEAL OEDEMA [None]
  - TREMOR [None]
